FAERS Safety Report 18480549 (Version 1)
Quarter: 2020Q4

REPORT INFORMATION
  Report Type: Spontaneous
  Country: GB (occurrence: GB)
  Receive Date: 20201109
  Receipt Date: 20201109
  Transmission Date: 20210114
  Serious: Yes (Other)
  Sender: FDA-Public Use
  Company Number: GB-TEVA-2020-GB-1845398

PATIENT
  Age: 16 Month
  Sex: Female

DRUGS (2)
  1. CLARITHROMYCIN CITRATE [Suspect]
     Active Substance: CLARITHROMYCIN CITRATE
     Indication: TONSILLITIS
     Dosage: 20 ML DAILY; MORNING AND NIGHT
     Route: 048
     Dates: start: 20201012, end: 20201012
  2. AMOXICILLIN. [Suspect]
     Active Substance: AMOXICILLIN
     Indication: TONSILLITIS
     Dosage: UNIT DOSE 15ML
     Route: 048
     Dates: start: 20201011, end: 20201012

REACTIONS (5)
  - Rash erythematous [Recovering/Resolving]
  - Diarrhoea [Recovering/Resolving]
  - Pyrexia [Recovering/Resolving]
  - Urticaria [Recovering/Resolving]
  - Pain [Recovering/Resolving]

NARRATIVE: CASE EVENT DATE: 20201011
